FAERS Safety Report 18484506 (Version 6)
Quarter: 2021Q3

REPORT INFORMATION
  Report Type: Report from Study
  Country: DE (occurrence: DE)
  Receive Date: 20201110
  Receipt Date: 20210730
  Transmission Date: 20211014
  Serious: Yes (Hospitalization)
  Sender: FDA-Public Use
  Company Number: DE-ROCHE-2708091

PATIENT
  Age: 51 Year
  Sex: Female
  Weight: 71 kg

DRUGS (23)
  1. TRASTUZUMAB. [Suspect]
     Active Substance: TRASTUZUMAB
     Route: 042
  2. RAMIPRIL. [Concomitant]
     Active Substance: RAMIPRIL
  3. NOVALGIN (METAMIZOLE SODIUM) [Concomitant]
     Active Substance: METAMIZOLE SODIUM
     Dosage: 90 TROPFEN
     Dates: start: 20200922
  4. ESPUMISAN [Concomitant]
     Active Substance: DIMETHICONE
     Dates: start: 20210114
  5. ZOPICLON [Concomitant]
     Active Substance: ZOPICLONE
     Dates: start: 20210408
  6. VENLAFAXIN [Concomitant]
     Active Substance: VENLAFAXINE HYDROCHLORIDE
  7. TRASTUZUMAB. [Suspect]
     Active Substance: TRASTUZUMAB
     Indication: BREAST CANCER METASTATIC
     Dosage: DATE OF LAST DOSE PRIOR TO SAE/AESI 22/OCT/2020
     Route: 042
     Dates: start: 20201022
  8. DEXAMETHASON [Concomitant]
     Active Substance: DEXAMETHASONE
     Dates: start: 20201112, end: 20201112
  9. PERTUZUMAB. [Suspect]
     Active Substance: PERTUZUMAB
     Indication: BREAST CANCER METASTATIC
     Dosage: DATE OF LAST DOSE PRIOR TO SAE/AESI 22/OCT/2020
     Route: 042
     Dates: start: 20201022
  10. PANTOPRAZOLE [Concomitant]
     Active Substance: PANTOPRAZOLE
     Dates: start: 20200701, end: 20201112
  11. RIBOCICLIB. [Suspect]
     Active Substance: RIBOCICLIB
     Route: 048
     Dates: start: 20201106
  12. QUETIAPIN [Concomitant]
     Active Substance: QUETIAPINE
  13. TILIDIN [Concomitant]
     Active Substance: NALOXONE HYDROCHLORIDE\TILIDINE HYDROCHLORIDE
     Dates: start: 20201022
  14. DIMETINDENMALEAT [Concomitant]
     Dates: start: 20201112, end: 20201112
  15. AMLODIPIN [Concomitant]
     Active Substance: AMLODIPINE BESYLATE
     Dates: start: 20210114
  16. MAGNESIUM [Concomitant]
     Active Substance: MAGNESIUM
     Dates: start: 20201211
  17. PERTUZUMAB. [Suspect]
     Active Substance: PERTUZUMAB
     Route: 042
  18. VENLAFAXINE [Concomitant]
     Active Substance: VENLAFAXINE HYDROCHLORIDE
  19. NADIFLOXACIN [Concomitant]
     Active Substance: NADIFLOXACIN
     Dates: start: 20210412
  20. TILIDINE [Concomitant]
     Active Substance: TILIDINE
     Dates: start: 20201022, end: 20201112
  21. RIBOCICLIB. [Suspect]
     Active Substance: RIBOCICLIB
     Indication: BREAST CANCER METASTATIC
     Dosage: DATE OF LAST DOSE PRIOR TO SAE/AESI 02/NOV/2020
     Route: 048
     Dates: start: 20201022
  22. PANTOPRAZOLE [Concomitant]
     Active Substance: PANTOPRAZOLE
     Dates: start: 20201113
  23. NYSTATIN. [Concomitant]
     Active Substance: NYSTATIN
     Dates: start: 20201216

REACTIONS (1)
  - Dehydration [Recovered/Resolved]

NARRATIVE: CASE EVENT DATE: 20201101
